FAERS Safety Report 19477084 (Version 1)
Quarter: 2021Q2

REPORT INFORMATION
  Report Type: Spontaneous
  Country: US (occurrence: US)
  Receive Date: 20210629
  Receipt Date: 20210629
  Transmission Date: 20210717
  Serious: Yes (Death)
  Sender: FDA-Public Use
  Company Number: None

PATIENT
  Age: 88 Year
  Sex: Male

DRUGS (12)
  1. FLUTICASONE. [Concomitant]
     Active Substance: FLUTICASONE
  2. AZITHYROMYCIN [Concomitant]
  3. MYRBETIQ [Concomitant]
  4. SODIUM CHLOR [Concomitant]
     Active Substance: SODIUM CHLORIDE
  5. XARELTO [Concomitant]
     Active Substance: RIVAROXABAN
  6. METOPRAL [Concomitant]
  7. TRAZODONR [Concomitant]
  8. ESCITAL OPRAM [Concomitant]
  9. IPRATROPIUM [Concomitant]
     Active Substance: IPRATROPIUM
  10. ESBRIET [Suspect]
     Active Substance: PIRFENIDONE
     Indication: ESSENTIAL HYPERTENSION
     Route: 048
     Dates: start: 20210127, end: 20210528
  11. ATORVASTATIN [Concomitant]
     Active Substance: ATORVASTATIN
  12. OMPERAZOLE [Concomitant]
     Active Substance: OMEPRAZOLE

REACTIONS (1)
  - Death [None]

NARRATIVE: CASE EVENT DATE: 20210528
